FAERS Safety Report 8837578 (Version 1)
Quarter: 2012Q4

REPORT INFORMATION
  Report Type: Report from Study
  Country: US (occurrence: US)
  Receive Date: 20121012
  Receipt Date: 20121012
  Transmission Date: 20130627
  Serious: Yes (Other)
  Sender: FDA-Public Use
  Company Number: US-US-EMD SERONO, INC.-7165748

PATIENT
  Sex: Male

DRUGS (2)
  1. REBIF [Suspect]
     Indication: MULTIPLE SCLEROSIS
     Route: 058
     Dates: start: 20120625
  2. DILANTIN [Concomitant]
     Indication: CONVULSION

REACTIONS (12)
  - Crohn^s disease [Not Recovered/Not Resolved]
  - Sinusitis [Not Recovered/Not Resolved]
  - Blood potassium decreased [Unknown]
  - Drug level below therapeutic [Unknown]
  - Serum ferritin decreased [Unknown]
  - Vitamin B12 decreased [Unknown]
  - Haemoglobin decreased [Unknown]
  - Haematocrit decreased [Unknown]
  - Vitamin D decreased [Unknown]
  - Injection site pain [Not Recovered/Not Resolved]
  - Injection site erythema [Recovering/Resolving]
  - Influenza like illness [Not Recovered/Not Resolved]
